FAERS Safety Report 8474571-2 (Version None)
Quarter: 2012Q2

REPORT INFORMATION
  Report Type: 
  Country: None (occurrence: None)
  Receive Date: 20120628
  Receipt Date: 20120625
  Transmission Date: 20120825
  Serious: Yes (Hospitalization)
  Sender: FDA-Public Use
  Company Number: US-BAYER-2012-063551

PATIENT
  Age: 30 Year
  Sex: Female
  Weight: 58 kg

DRUGS (6)
  1. DROSPIRENONE AND ETHINYL ESTRADIOL [Suspect]
  2. CITALOPRAM HYDROBROMIDE [Concomitant]
     Dosage: 20 MG, UNK
     Route: 048
     Dates: start: 20110308
  3. DILAUDID [Concomitant]
  4. ALPRAZOLAM [Concomitant]
     Indication: ANXIETY
     Dosage: 0.25 MG, UNK
     Route: 048
     Dates: start: 20110308
  5. ACETAMINOPHEN [Concomitant]
     Dosage: UNK UNK, PRN
  6. ZOFRAN [Concomitant]

REACTIONS (1)
  - PULMONARY EMBOLISM [None]
